FAERS Safety Report 8445548-8 (Version None)
Quarter: 2012Q2

REPORT INFORMATION
  Report Type: 
  Country: None (occurrence: None)
  Receive Date: 20120618
  Receipt Date: 20120608
  Transmission Date: 20120825
  Serious: Yes (Other)
  Sender: FDA-Public Use
  Company Number: US-GLAXOSMITHKLINE-A0980628A

PATIENT
  Age: 86 Year
  Sex: Male

DRUGS (1)
  1. ARZERRA [Suspect]
     Indication: B-CELL LYMPHOMA
     Dosage: 300MG SINGLE DOSE
     Route: 042
     Dates: start: 20120601

REACTIONS (6)
  - HYPOAESTHESIA [None]
  - MYALGIA [None]
  - PROGRESSIVE MULTIFOCAL LEUKOENCEPHALOPATHY [None]
  - RENAL FAILURE ACUTE [None]
  - NEUROLOGICAL SYMPTOM [None]
  - MUSCULAR WEAKNESS [None]
